FAERS Safety Report 7215647-7 (Version None)
Quarter: 2011Q1

REPORT INFORMATION
  Report Type: 
  Country: None (occurrence: None)
  Receive Date: 20110107
  Receipt Date: 20110103
  Transmission Date: 20110831
  Serious: No
  Sender: FDA-Public Use
  Company Number: US-TEVA-260293USA

PATIENT
  Sex: Female

DRUGS (11)
  1. COPAXONE [Suspect]
     Indication: MULTIPLE SCLEROSIS
     Route: 058
     Dates: start: 20101012
  2. CICLOSPORIN EYE DROPS [Concomitant]
  3. AMITRIPTYLINE [Concomitant]
  4. PANTOPRAZOLE [Concomitant]
  5. MORPHINE [Concomitant]
  6. CLONAZEPAM [Concomitant]
  7. OXYBUTYNIN HYDROCHLORIDE [Concomitant]
  8. TRIAMTERENE [Concomitant]
  9. LEVOTHYROXINE [Concomitant]
  10. PREGABALIN [Concomitant]
  11. ESTROGEN NOS [Concomitant]

REACTIONS (1)
  - NAIL DISORDER [None]
